FAERS Safety Report 23669218 (Version 1)
Quarter: 2024Q1

REPORT INFORMATION
  Report Type: Report from Study
  Country: US (occurrence: US)
  Receive Date: 20240325
  Receipt Date: 20240325
  Transmission Date: 20240409
  Serious: Yes (Hospitalization, Other)
  Sender: FDA-Public Use
  Company Number: US-EXELIXIS-CABO-24074057

PATIENT
  Sex: Female

DRUGS (1)
  1. CABOMETYX [Suspect]
     Active Substance: CABOZANTINIB S-MALATE
     Indication: Hepatocellular carcinoma
     Dosage: 60 MG, QD
     Route: 048
     Dates: start: 202312, end: 202402

REACTIONS (8)
  - Coronary artery occlusion [Unknown]
  - Diarrhoea haemorrhagic [Unknown]
  - Haemorrhoids [Unknown]
  - Appetite disorder [Unknown]
  - Intra-abdominal fluid collection [Unknown]
  - Blood pressure abnormal [Unknown]
  - Fatigue [Unknown]
  - Dizziness [Unknown]
